FAERS Safety Report 13887205 (Version 1)
Quarter: 2017Q3

REPORT INFORMATION
  Report Type: Spontaneous
  Country: US (occurrence: US)
  Receive Date: 20170821
  Receipt Date: 20170821
  Transmission Date: 20171127
  Serious: Yes (Other)
  Sender: FDA-Public Use
  Company Number: US-ROCHE-1051920

PATIENT
  Sex: Female

DRUGS (5)
  1. ACTEMRA [Suspect]
     Active Substance: TOCILIZUMAB
     Indication: PRODUCT USED FOR UNKNOWN INDICATION
     Route: 065
  2. ARAVA [Concomitant]
     Active Substance: LEFLUNOMIDE
  3. HUMIRA [Concomitant]
     Active Substance: ADALIMUMAB
  4. ENBREL [Concomitant]
     Active Substance: ETANERCEPT
  5. MTX [Concomitant]
     Active Substance: METHOTREXATE SODIUM

REACTIONS (1)
  - Kidney infection [Unknown]
